FAERS Safety Report 10362847 (Version 3)
Quarter: 2014Q4

REPORT INFORMATION
  Report Type: Spontaneous
  Country: US (occurrence: US)
  Receive Date: 20140805
  Receipt Date: 20141128
  Transmission Date: 20150528
  Serious: Yes (Death, Congenital Anomaly, Other)
  Sender: FDA-Public Use
  Company Number: US-PFIZER INC-2014215133

PATIENT
  Age: 4 Week
  Sex: Female

DRUGS (2)
  1. ZOLOFT [Suspect]
     Active Substance: SERTRALINE HYDROCHLORIDE
     Indication: ANXIETY
  2. ZOLOFT [Suspect]
     Active Substance: SERTRALINE HYDROCHLORIDE
     Indication: DEPRESSION
     Dosage: UNK
     Route: 064
     Dates: start: 1999

REACTIONS (9)
  - Cardiac disorder [Fatal]
  - Hydrocephalus [Unknown]
  - Cerebral ventricle dilatation [Unknown]
  - Hypoplastic left heart syndrome [Unknown]
  - Pulmonary hypoplasia [Unknown]
  - Maternal exposure during pregnancy [Fatal]
  - Cystic lymphangioma [Unknown]
  - Ventricular septal defect [Unknown]
  - Uterine disorder [Unknown]

NARRATIVE: CASE EVENT DATE: 20041110
